FAERS Safety Report 9504579 (Version 2)
Quarter: 2013Q3

REPORT INFORMATION
  Report Type: Spontaneous
  Country: US (occurrence: US)
  Receive Date: 20130906
  Receipt Date: 20130906
  Transmission Date: 20140515
  Serious: Yes (Other)
  Sender: FDA-Public Use
  Company Number: US-FRI-1000030056

PATIENT
  Age: 79 Year
  Sex: Female

DRUGS (6)
  1. ARMOUR THYROID [Suspect]
     Indication: HYPOTHYROIDISM
     Dosage: 15 MG
     Dates: start: 2012
  2. VERAPAMIL [Concomitant]
     Indication: PALPITATIONS
     Dosage: 40 MG
  3. FLOVENT [Concomitant]
     Indication: CHRONIC OBSTRUCTIVE PULMONARY DISEASE
  4. RESCUE INHALER (NOS) [Concomitant]
     Indication: CHRONIC OBSTRUCTIVE PULMONARY DISEASE
  5. VITAMINS NOS [Concomitant]
  6. CALCIUM [Concomitant]

REACTIONS (5)
  - Atrioventricular block [Unknown]
  - Dyspnoea [Recovered/Resolved]
  - Palpitations [Unknown]
  - Headache [Unknown]
  - Dysphagia [Unknown]
